FAERS Safety Report 17029292 (Version 2)
Quarter: 2021Q4

REPORT INFORMATION
  Report Type: Spontaneous
  Country: US (occurrence: US)
  Receive Date: 20191114
  Receipt Date: 20211125
  Transmission Date: 20220303
  Serious: Yes (Hospitalization, Other)
  Sender: FDA-Public Use
  Company Number: US-SUN PHARMACEUTICAL INDUSTRIES LTD-2019R1-226433

PATIENT
  Age: 36 Year
  Sex: Female

DRUGS (1)
  1. PHENYTOIN [Suspect]
     Active Substance: PHENYTOIN
     Indication: Product used for unknown indication
     Dosage: 200 MILLIGRAM, TID
     Route: 048

REACTIONS (4)
  - Toxicity to various agents [Unknown]
  - Ileus [Recovered/Resolved]
  - Bradycardia [Recovering/Resolving]
  - Respiratory failure [Not Recovered/Not Resolved]
